FAERS Safety Report 6323379-2 (Version None)
Quarter: 2009Q3

REPORT INFORMATION
  Report Type: 
  Country: None (occurrence: None)
  Receive Date: 20090824
  Receipt Date: 20090401
  Transmission Date: 20100115
  Serious: No
  Sender: FDA-Public Use
  Company Number: US-ABBOTT-09P-163-0566458-00

PATIENT
  Sex: Female
  Weight: 66.738 kg

DRUGS (8)
  1. NIASPAN [Suspect]
     Indication: HIGH DENSITY LIPOPROTEIN DECREASED
     Dosage: DAILY AT HOUR OF SLEEP
     Route: 048
     Dates: start: 20090323, end: 20090328
  2. MULTI-VITAMIN [Suspect]
     Indication: DRUG USE FOR UNKNOWN INDICATION
     Route: 048
  3. ASPIRIN [Concomitant]
     Indication: DRUG USE FOR UNKNOWN INDICATION
     Dosage: DAILY, 30 MINUTES BEFORE NIASPAN
     Route: 048
  4. TOPROL-XL [Concomitant]
     Indication: CARDIAC DISORDER
  5. CRESTOR [Concomitant]
     Indication: BLOOD CHOLESTEROL
  6. ZETIA [Concomitant]
     Indication: BLOOD CHOLESTEROL
  7. SYNTHROID [Concomitant]
     Indication: DRUG USE FOR UNKNOWN INDICATION
  8. CALCIUM [Concomitant]
     Indication: DRUG USE FOR UNKNOWN INDICATION

REACTIONS (2)
  - DYSPNOEA [None]
  - FEELING HOT [None]
